FAERS Safety Report 9826999 (Version 1)
Quarter: 2014Q1

REPORT INFORMATION
  Report Type: Spontaneous
  Country: US (occurrence: US)
  Receive Date: 20140117
  Receipt Date: 20140117
  Transmission Date: 20141002
  Serious: No
  Sender: FDA-Public Use
  Company Number: US-GLAXOSMITHKLINE-A1024742A

PATIENT
  Age: 48 Year
  Sex: Male
  Weight: 81.8 kg

DRUGS (10)
  1. PROMACTA [Suspect]
     Indication: IMMUNE THROMBOCYTOPENIC PURPURA
     Dosage: 100MG PER DAY
     Route: 048
     Dates: start: 20130313, end: 20130522
  2. AMICAR [Concomitant]
     Indication: HAEMORRHAGE
     Dosage: 500MG SEE DOSAGE TEXT
  3. CLINDAMYCIN [Concomitant]
     Indication: PROPHYLAXIS
     Dosage: 600MG SEE DOSAGE TEXT
     Route: 065
  4. ECONAZOLE CREAM [Concomitant]
     Indication: PRODUCT USED FOR UNKNOWN INDICATION
     Route: 061
  5. HYDROCORTISONE CREAM [Concomitant]
     Route: 061
  6. ZEASORB AF [Concomitant]
     Route: 061
  7. NYSTATIN + TRIAMCINOLONE [Concomitant]
  8. PRAMOXINE [Concomitant]
     Route: 061
  9. TRIAMCINOLONE NASAL SPRAY [Concomitant]
     Dosage: 4PUFF PER DAY
     Route: 045
  10. ROMIPLOSTIM [Concomitant]
     Dosage: 380MCG WEEKLY
     Route: 058

REACTIONS (6)
  - Alanine aminotransferase increased [Recovering/Resolving]
  - Abdominal distension [Recovered/Resolved]
  - Nausea [Recovering/Resolving]
  - Decreased appetite [Recovering/Resolving]
  - Aspartate aminotransferase increased [Recovered/Resolved]
  - Blood bilirubin decreased [Recovered/Resolved]
